FAERS Safety Report 11614944 (Version 1)
Quarter: 2015Q4

REPORT INFORMATION
  Report Type: Spontaneous
  Country: US (occurrence: US)
  Receive Date: 20151009
  Receipt Date: 20151009
  Transmission Date: 20160304
  Serious: No
  Sender: FDA-Public Use
  Company Number: US-009507513-1510USA000289

PATIENT
  Age: 27 Year
  Sex: Female

DRUGS (8)
  1. PROPOFOL. [Suspect]
     Active Substance: PROPOFOL
     Indication: ANAESTHESIA
  2. PROCARDIA [Suspect]
     Active Substance: NIFEDIPINE
     Indication: TOCOLYSIS
     Dosage: WAS DOSED EVERY 6 HOURS FOR 24 HOURS
  3. REMIFENTANIL HYDROCHLORIDE [Suspect]
     Active Substance: REMIFENTANIL HYDROCHLORIDE
     Indication: ANAESTHESIA
  4. FAMOTIDINE. [Suspect]
     Active Substance: FAMOTIDINE
     Indication: PROPHYLAXIS
     Route: 048
  5. CITRIC ACID (+) SODIUM CITRATE [Suspect]
     Active Substance: CITRIC ACID MONOHYDRATE\SODIUM CITRATE
  6. METOCLOPRAMIDE. [Suspect]
     Active Substance: METOCLOPRAMIDE
  7. HEXADROL [Suspect]
     Active Substance: DEXAMETHASONE
     Indication: SPINAL COLUMN STENOSIS
     Route: 048
  8. SUCCINYLCHLORIDE INJECTION [Suspect]
     Active Substance: SUCCINYLCHOLINE

REACTIONS (1)
  - Exposure during pregnancy [Recovered/Resolved]
